FAERS Safety Report 8763439 (Version 3)
Quarter: 2012Q4

REPORT INFORMATION
  Report Type: 
  Country: BR (occurrence: BR)
  Receive Date: 20120831
  Receipt Date: 20121017
  Transmission Date: 20130627
  Serious: Yes (Other)
  Sender: FDA-Public Use
  Company Number: BR-AMGEN-BRASP2012054646

PATIENT
  Age: 69 Year
  Sex: Female
  Weight: 61 kg

DRUGS (6)
  1. ENBREL [Suspect]
     Indication: PSORIASIS
     Dosage: 50 mg, once weekly
     Route: 058
     Dates: start: 201105, end: 2012
  2. ENBREL [Suspect]
     Dosage: 50 mg, qwk
     Route: 058
     Dates: start: 2012, end: 20120822
  3. CITALOR [Concomitant]
     Indication: BLOOD CHOLESTEROL
     Dosage: UNK
  4. PURAN T4 [Concomitant]
     Indication: HYPOTHYROIDISM
     Dosage: UNK
  5. OMEPRAZOLE [Concomitant]
     Dosage: UNK
  6. VASATIV [Concomitant]
     Indication: CARDIOVASCULAR DISORDER
     Dosage: UNK

REACTIONS (2)
  - Weight increased [Unknown]
  - Basal cell carcinoma [Unknown]
